APPROVED DRUG PRODUCT: TOFACITINIB CITRATE
Active Ingredient: TOFACITINIB CITRATE
Strength: EQ 1MG BASE/ML
Dosage Form/Route: SOLUTION;ORAL
Application: A216878 | Product #001
Applicant: HIKMA PHARMACEUTICALS USA INC
Approved: Sep 25, 2023 | RLD: No | RS: No | Type: DISCN